FAERS Safety Report 24657635 (Version 2)
Quarter: 2024Q4

REPORT INFORMATION
  Report Type: Spontaneous
  Country: US (occurrence: US)
  Receive Date: 20241125
  Receipt Date: 20241204
  Transmission Date: 20250114
  Serious: No
  Sender: Kenvue
  Company Number: US-KENVUE-20241031109

PATIENT
  Age: 2 Year
  Sex: Female

DRUGS (1)
  1. CHILDRENS MOTRIN [Suspect]
     Active Substance: IBUPROFEN
     Indication: Accidental exposure to product by child
     Dosage: UNK, DRUNK AROUND 17ML
     Route: 048
     Dates: start: 20241023

REACTIONS (3)
  - Abdominal pain upper [Recovered/Resolved]
  - Failure of child resistant product closure [Unknown]
  - Accidental exposure to product by child [Unknown]

NARRATIVE: CASE EVENT DATE: 20240101
